FAERS Safety Report 5778930-8 (Version None)
Quarter: 2008Q2

REPORT INFORMATION
  Report Type: 
  Country: None (occurrence: None)
  Receive Date: 20080619
  Receipt Date: 20080613
  Transmission Date: 20081010
  Serious: Yes (Hospitalization)
  Sender: FDA-Public Use
  Company Number: DE-WYE-G01687808

PATIENT
  Age: 42 Year
  Sex: Female

DRUGS (13)
  1. VENLAFAXINE HCL [Suspect]
     Indication: SOMATISATION DISORDER
     Route: 048
     Dates: start: 20080206, end: 20080206
  2. VENLAFAXINE HCL [Suspect]
     Indication: MAJOR DEPRESSION
     Route: 048
     Dates: start: 20080123, end: 20080124
  3. VENLAFAXINE HCL [Suspect]
     Route: 048
     Dates: start: 20080125, end: 20080204
  4. VENLAFAXINE HCL [Suspect]
     Route: 048
     Dates: start: 20080205, end: 20080205
  5. LEVOTHYROXINE SODIUM [Concomitant]
     Indication: AUTOIMMUNE THYROIDITIS
     Route: 048
     Dates: end: 20080220
  6. LEVOTHYROXINE SODIUM [Concomitant]
     Dosage: 75 - 100 UG DAILY
     Route: 048
     Dates: start: 20080221
  7. FERRO-FOLSAN [Concomitant]
     Dates: start: 20080122
  8. LYRICA [Concomitant]
     Indication: SOMATISATION DISORDER
     Route: 048
     Dates: start: 20080127, end: 20080221
  9. LYRICA [Concomitant]
     Indication: MAJOR DEPRESSION
     Route: 048
     Dates: start: 20080122, end: 20080122
  10. LYRICA [Concomitant]
     Route: 048
     Dates: start: 20080123, end: 20080123
  11. LYRICA [Concomitant]
     Route: 048
     Dates: start: 20080124, end: 20080124
  12. LYRICA [Concomitant]
     Route: 048
     Dates: start: 20080125, end: 20080125
  13. LYRICA [Concomitant]
     Route: 048
     Dates: start: 20080126, end: 20080126

REACTIONS (3)
  - CYST [None]
  - HEPATIC ENZYME INCREASED [None]
  - REFLUX OESOPHAGITIS [None]
